FAERS Safety Report 5554302-6 (Version None)
Quarter: 2007Q4

REPORT INFORMATION
  Report Type: 
  Country: None (occurrence: None)
  Receive Date: 20071213
  Receipt Date: 20071211
  Transmission Date: 20080405
  Serious: Yes (Life-Threatening, Hospitalization)
  Sender: FDA-Public Use
  Company Number: D0055358A

PATIENT
  Age: 52 Year
  Sex: Male
  Weight: 75 kg

DRUGS (3)
  1. FLUTIDE 250 [Suspect]
     Route: 055
     Dates: start: 20071119, end: 20071201
  2. ATMADISC [Suspect]
     Route: 055
     Dates: end: 20071101
  3. BUDES [Concomitant]
     Route: 065
     Dates: start: 20070101

REACTIONS (12)
  - ALLERGIC GRANULOMATOUS ANGIITIS [None]
  - ANGINA PECTORIS [None]
  - ANGIOEDEMA [None]
  - ANGIOPATHY [None]
  - DYSPNOEA [None]
  - HYPERSENSITIVITY [None]
  - HYPERVENTILATION [None]
  - JOINT SWELLING [None]
  - MUSCULOSKELETAL PAIN [None]
  - RESTLESSNESS [None]
  - VASCULITIS [None]
  - VENTRICULAR TACHYCARDIA [None]
